FAERS Safety Report 7141888-3 (Version None)
Quarter: 2010Q4

REPORT INFORMATION
  Report Type: 
  Country: None (occurrence: None)
  Receive Date: 20101207
  Receipt Date: 20090324
  Transmission Date: 20110411
  Serious: Yes (Other)
  Sender: FDA-Public Use
  Company Number: NL-ROCHE-746272

PATIENT
  Sex: Female

DRUGS (2)
  1. AVASTIN [Suspect]
     Indication: BREAST CANCER
     Route: 042
  2. AVASTIN [Suspect]
     Dosage: MAINTENANCE THERAPY PHASE
     Route: 042

REACTIONS (2)
  - ABDOMINAL SYMPTOM [None]
  - MALIGNANT NEOPLASM PROGRESSION [None]
